FAERS Safety Report 21409593 (Version 1)
Quarter: 2022Q4

REPORT INFORMATION
  Report Type: Spontaneous
  Country: US (occurrence: None)
  Receive Date: 20221003
  Receipt Date: 20221003
  Transmission Date: 20230112
  Serious: Yes (Death)
  Sender: FDA-Public Use
  Company Number: None

PATIENT
  Age: 80 Year
  Sex: Male

DRUGS (1)
  1. XIFAXAN [Suspect]
     Active Substance: RIFAXIMIN
     Indication: Hepatitis C
     Dosage: FREQUENCY : TWICE A DAY;?
     Route: 048
     Dates: start: 20220114

REACTIONS (1)
  - Death [None]

NARRATIVE: CASE EVENT DATE: 20220902
